FAERS Safety Report 17170054 (Version 3)
Quarter: 2019Q4

REPORT INFORMATION
  Report Type: Spontaneous
  Country: US (occurrence: US)
  Receive Date: 20191218
  Receipt Date: 20191230
  Transmission Date: 20200122
  Serious: No
  Sender: FDA-Public Use
  Company Number: US-009507513-1912USA007295

PATIENT
  Sex: Female

DRUGS (2)
  1. IMPLANON NXT [Suspect]
     Active Substance: ETONOGESTREL
     Dosage: 1 ROD SUBDERMALLY EVERY 3 YEARS
     Route: 059
  2. JADELLE [Suspect]
     Active Substance: LEVONORGESTREL
     Dosage: UNK

REACTIONS (3)
  - Device deployment issue [Unknown]
  - Complication of device removal [Not Recovered/Not Resolved]
  - Product quality issue [Unknown]
